FAERS Safety Report 25908056 (Version 2)
Quarter: 2025Q4

REPORT INFORMATION
  Report Type: Spontaneous
  Country: EU (occurrence: EU)
  Receive Date: 20251010
  Receipt Date: 20251016
  Transmission Date: 20260119
  Serious: Yes (Hospitalization, Other)
  Sender: NOVARTIS
  Company Number: None

PATIENT
  Age: 54 Year
  Sex: Female

DRUGS (16)
  1. LETROZOLE [Suspect]
     Active Substance: LETROZOLE
     Indication: Hormone therapy
     Dosage: 2.5 MG
     Route: 065
  2. LETROZOLE [Suspect]
     Active Substance: LETROZOLE
     Indication: Invasive ductal breast carcinoma
     Dosage: 2.5 MG
     Route: 065
     Dates: start: 202302
  3. LETROZOLE [Suspect]
     Active Substance: LETROZOLE
     Indication: HER2 positive breast cancer
  4. DOCETAXEL [Suspect]
     Active Substance: DOCETAXEL
     Indication: Invasive ductal breast carcinoma
     Dosage: UNK
     Route: 065
     Dates: start: 202208
  5. DOCETAXEL [Suspect]
     Active Substance: DOCETAXEL
     Indication: Metastases to lymph nodes
  6. DOCETAXEL [Suspect]
     Active Substance: DOCETAXEL
     Indication: HER2 positive breast cancer
  7. PERTUZUMAB [Suspect]
     Active Substance: PERTUZUMAB
     Indication: HER2 positive breast cancer
     Dosage: THE PATIENT HAS COMPLETED FOUR CYCLES OF THE PRESCRIBED ANTI-TUMOR THERAPY
     Route: 065
     Dates: start: 202208
  8. PERTUZUMAB [Suspect]
     Active Substance: PERTUZUMAB
     Indication: Invasive ductal breast carcinoma
  9. PERTUZUMAB [Suspect]
     Active Substance: PERTUZUMAB
     Indication: Metastases to lymph nodes
  10. HERCEPTIN [Suspect]
     Active Substance: TRASTUZUMAB
     Indication: Invasive ductal breast carcinoma
     Dosage: UNK (THE PATIENT HAS COMPLETED FOUR CYCLES OF THE PRESCRIBED ANTI-TUMOR THERAPY)
     Route: 065
  11. HERCEPTIN [Suspect]
     Active Substance: TRASTUZUMAB
     Indication: HER2 positive breast cancer
     Dosage: UNK
     Route: 065
     Dates: start: 202208
  12. HERCEPTIN [Suspect]
     Active Substance: TRASTUZUMAB
     Indication: Metastases to lymph nodes
     Dosage: UNK
     Route: 065
     Dates: start: 202305, end: 202305
  13. HERCEPTIN [Suspect]
     Active Substance: TRASTUZUMAB
     Dosage: UNK
     Route: 065
     Dates: start: 202302
  14. RAMIPRIL [Concomitant]
     Active Substance: RAMIPRIL
     Indication: Cardiovascular event prophylaxis
     Dosage: 2.5 MG/DAY
     Route: 065
  15. ROSUVASTATIN [Concomitant]
     Active Substance: ROSUVASTATIN
     Indication: Cardiovascular event prophylaxis
     Dosage: 20 MG
     Route: 065
  16. BISOPROLOL [Concomitant]
     Active Substance: BISOPROLOL
     Indication: Cardiovascular event prophylaxis
     Dosage: 2.5 MG/DAY
     Route: 065

REACTIONS (10)
  - Cardiotoxicity [Recovered/Resolved]
  - Coronary artery disease [Recovering/Resolving]
  - Cardiomyopathy [Recovering/Resolving]
  - Cardiac failure [Recovered/Resolved]
  - Bundle branch block left [Recovering/Resolving]
  - Angina pectoris [Recovering/Resolving]
  - Fatigue [Recovering/Resolving]
  - Malaise [Recovering/Resolving]
  - Dyspnoea [Recovering/Resolving]
  - Left ventricular dysfunction [Recovering/Resolving]

NARRATIVE: CASE EVENT DATE: 20221101
